FAERS Safety Report 8037671 (Version 2)
Quarter: 2012Q4

REPORT INFORMATION
  Report Type: 
  Country: US (occurrence: US)
  Receive Date: 20110715
  Receipt Date: 20121003
  Transmission Date: 20130627
  Serious: Yes (Hospitalization)
  Sender: FDA-Public Use
  Company Number: US-US-EMD SERONO, INC.-7070006

PATIENT
  Age: 50 None
  Sex: Male

DRUGS (4)
  1. REBIF [Suspect]
     Indication: MULTIPLE SCLEROSIS
     Route: 058
     Dates: start: 20110520
  2. REBIF [Suspect]
     Route: 058
     Dates: end: 201106
  3. REBIF [Suspect]
     Route: 058
  4. EFFEXOR [Concomitant]
     Indication: DEPRESSION
     Dates: start: 2008

REACTIONS (2)
  - Self-injurious ideation [Recovered/Resolved]
  - Depression [Recovered/Resolved]
